FAERS Safety Report 24194039 (Version 1)
Quarter: 2024Q3

REPORT INFORMATION
  Report Type: Spontaneous
  Country: US (occurrence: US)
  Receive Date: 20240809
  Receipt Date: 20240809
  Transmission Date: 20241016
  Serious: No
  Sender: MSN LABORATORIES
  Company Number: US-MSNLABS-2024MSNSPO01701

PATIENT

DRUGS (1)
  1. LOSARTAN POTASSIUM [Suspect]
     Active Substance: LOSARTAN POTASSIUM
     Indication: Hypertension
     Route: 048

REACTIONS (5)
  - Product use complaint [Unknown]
  - Product odour abnormal [Unknown]
  - Product substitution issue [Unknown]
  - Product taste abnormal [Unknown]
  - Rash [Unknown]
